FAERS Safety Report 4741089-X (Version None)
Quarter: 2005Q3

REPORT INFORMATION
  Report Type: 
  Country: None (occurrence: None)
  Receive Date: 20050810
  Receipt Date: 20050616
  Transmission Date: 20060218
  Serious: Yes (Other)
  Sender: FDA-Public Use
  Company Number: NO-ROCHE-408454

PATIENT
  Age: 62 Year
  Sex: Female
  Weight: 74 kg

DRUGS (1)
  1. XENICAL [Suspect]
     Indication: OBESITY
     Route: 048
     Dates: start: 20030708, end: 20050603

REACTIONS (4)
  - ALANINE AMINOTRANSFERASE INCREASED [None]
  - THIRST [None]
  - URINE CALCIUM INCREASED [None]
  - URINE SODIUM INCREASED [None]
